FAERS Safety Report 5449336-6 (Version None)
Quarter: 2007Q3

REPORT INFORMATION
  Report Type: 
  Country: None (occurrence: None)
  Receive Date: 20070911
  Receipt Date: 20070830
  Transmission Date: 20080115
  Serious: Yes (Life-Threatening)
  Sender: FDA-Public Use
  Company Number: JP-PFIZER INC-2007067553

PATIENT
  Sex: Male
  Weight: 53.2 kg

DRUGS (23)
  1. IDARUBICIN HCL [Suspect]
     Indication: ACUTE MYELOID LEUKAEMIA
     Route: 042
     Dates: start: 20070804, end: 20070806
  2. VORICONAZOLE [Suspect]
     Indication: PROPHYLAXIS
     Route: 048
     Dates: start: 20070807, end: 20070809
  3. VORICONAZOLE [Suspect]
     Indication: FUNGAL INFECTION
  4. DIFLUCAN [Suspect]
     Indication: FUNGAL INFECTION
     Route: 048
     Dates: start: 20070803, end: 20070806
  5. MAXIPIME [Suspect]
     Indication: SEPSIS
     Dosage: DAILY DOSE:2GRAM
     Route: 048
     Dates: start: 20070803, end: 20070807
  6. MAXIPIME [Suspect]
  7. CYLOCIDE [Suspect]
     Indication: ACUTE MYELOID LEUKAEMIA
     Dates: start: 20070803, end: 20070809
  8. NASEA [Suspect]
     Indication: VOMITING
     Route: 042
     Dates: start: 20070804, end: 20070806
  9. ALLOPURINOL [Suspect]
     Indication: HYPERURICAEMIA
     Route: 048
  10. POLYMYXIN B SULFATE [Concomitant]
     Route: 048
     Dates: start: 20070803, end: 20070809
  11. ZANTAC 150 [Concomitant]
     Route: 048
     Dates: start: 20070803, end: 20070803
  12. ISODINE [Concomitant]
  13. BIAPENEM [Concomitant]
     Dates: start: 20070804, end: 20070806
  14. SOLITA-T1 INJECTION [Concomitant]
     Route: 042
     Dates: start: 20070803, end: 20070809
  15. SOLITA-T 3G [Concomitant]
     Route: 042
     Dates: start: 20070803, end: 20070809
  16. MEYLON [Concomitant]
     Route: 042
     Dates: start: 20070803, end: 20070809
  17. LASIX [Concomitant]
     Route: 042
     Dates: start: 20070805, end: 20070813
  18. GAMIMUNE N 5% [Concomitant]
     Route: 042
     Dates: start: 20070807, end: 20070809
  19. OMEGA [Concomitant]
     Route: 042
     Dates: start: 20070808, end: 20070818
  20. AMIKACIN [Concomitant]
     Route: 042
     Dates: start: 20070809, end: 20070821
  21. MORPHINE HYDROCHLORIDE [Concomitant]
     Route: 042
     Dates: start: 20070806, end: 20070819
  22. POLYMYXIN B SULFATE [Concomitant]
  23. RANITIDINE HYDROCHLORIDE [Concomitant]
     Route: 048

REACTIONS (1)
  - JAUNDICE [None]
